FAERS Safety Report 8110626-X (Version None)
Quarter: 2012Q1

REPORT INFORMATION
  Report Type: 
  Country: None (occurrence: None)
  Receive Date: 20120203
  Receipt Date: 20120201
  Transmission Date: 20120608
  Serious: No
  Sender: FDA-Public Use
  Company Number: US-PFIZER INC-2012028265

PATIENT
  Sex: Male

DRUGS (1)
  1. NICOTROL [Suspect]
     Indication: CHRONIC OBSTRUCTIVE PULMONARY DISEASE
     Dosage: UNK, AS NEEDED
     Route: 045

REACTIONS (2)
  - MALAISE [None]
  - DRUG INEFFECTIVE [None]
